FAERS Safety Report 24546077 (Version 1)
Quarter: 2024Q4

REPORT INFORMATION
  Report Type: Spontaneous
  Country: GB (occurrence: GB)
  Receive Date: 20241024
  Receipt Date: 20241024
  Transmission Date: 20250115
  Serious: Yes (Other)
  Sender: GE HEALTHCARE
  Company Number: None

PATIENT
  Age: 54 Year
  Sex: Male
  Weight: 72 kg

DRUGS (1)
  1. OMNIPAQUE [Suspect]
     Active Substance: IOHEXOL
     Indication: Computerised tomogram
     Dosage: 54 ML, TOTAL
     Route: 065
     Dates: start: 20241010, end: 20241010

REACTIONS (3)
  - Dysphagia [Unknown]
  - Sneezing [Unknown]
  - Pruritus [Unknown]

NARRATIVE: CASE EVENT DATE: 20241010
